FAERS Safety Report 6646423-1 (Version None)
Quarter: 2010Q1

REPORT INFORMATION
  Report Type: 
  Country: None (occurrence: None)
  Receive Date: 20100318
  Receipt Date: 20100309
  Transmission Date: 20100710
  Serious: Yes (Disabling)
  Sender: FDA-Public Use
  Company Number: 2010AL001460

PATIENT
  Sex: Female

DRUGS (1)
  1. METOCLOPRAMIDE [Suspect]
     Indication: GASTRIC DISORDER
     Dosage: ; PO
     Route: 048

REACTIONS (12)
  - AKATHISIA [None]
  - ANXIETY [None]
  - ASTHENIA [None]
  - DEFORMITY [None]
  - DYSKINESIA [None]
  - EMOTIONAL DISTRESS [None]
  - IMPAIRED SELF-CARE [None]
  - INJURY [None]
  - INTENTIONAL DRUG MISUSE [None]
  - NERVOUS SYSTEM DISORDER [None]
  - PAIN [None]
  - TREMOR [None]
